FAERS Safety Report 4976741-4 (Version None)
Quarter: 2006Q2

REPORT INFORMATION
  Report Type: 
  Country: None (occurrence: None)
  Receive Date: 20060412
  Receipt Date: 20060328
  Transmission Date: 20061013
  Serious: Yes (Hospitalization)
  Sender: FDA-Public Use
  Company Number: WAES 0603USA04301

PATIENT
  Age: 68 Year
  Sex: Female
  Weight: 69.4003 kg

DRUGS (2)
  1. CLINORIL [Suspect]
     Indication: OSTEOARTHRITIS
     Dosage: 200 MG/BID/PO
     Route: 048
     Dates: start: 20040501
  2. DEXAMETHASONE 4MG TAB [Suspect]
     Indication: PAIN
     Dosage: 4 MG/TID/PO
     Route: 048
     Dates: start: 20060110

REACTIONS (3)
  - GASTRIC ULCER [None]
  - MALLORY-WEISS SYNDROME [None]
  - REFLUX OESOPHAGITIS [None]
